FAERS Safety Report 5382014-0 (Version None)
Quarter: 2007Q3

REPORT INFORMATION
  Report Type: 
  Country: None (occurrence: None)
  Receive Date: 20070709
  Receipt Date: 20070702
  Transmission Date: 20080115
  Serious: Yes (Other)
  Sender: FDA-Public Use
  Company Number: B0478312A

PATIENT
  Age: 27 Year
  Sex: Female

DRUGS (5)
  1. ARTIST [Suspect]
     Indication: CARDIAC FAILURE
     Route: 048
  2. DOBUTAMINE HCL [Concomitant]
     Indication: CONGESTIVE CARDIOMYOPATHY
     Route: 065
  3. DIURETIC [Concomitant]
     Indication: CARDIAC FAILURE
     Route: 065
  4. ACE INHIBITOR [Concomitant]
     Indication: CARDIAC FAILURE
     Route: 065
  5. BETA BLOCKER [Concomitant]
     Indication: DRUG USE FOR UNKNOWN INDICATION
     Route: 065

REACTIONS (4)
  - ANURIA [None]
  - CONGESTIVE CARDIOMYOPATHY [None]
  - HYPOTENSION [None]
  - SHOCK [None]
